FAERS Safety Report 16102747 (Version 3)
Quarter: 2020Q1

REPORT INFORMATION
  Report Type: Report from Study
  Country: US (occurrence: US)
  Receive Date: 20190321
  Receipt Date: 20200204
  Transmission Date: 20200409
  Serious: Yes (Hospitalization)
  Sender: FDA-Public Use
  Company Number: US-MYLANLABS-2019M1025766

PATIENT
  Sex: Male
  Weight: 120 kg

DRUGS (28)
  1. TACROLIMUS. [Suspect]
     Active Substance: TACROLIMUS
     Dosage: 10 MILLIGRAM, BID
     Route: 048
     Dates: end: 20190212
  2. SODIUM CHLORIDE. [Concomitant]
     Active Substance: SODIUM CHLORIDE
     Dosage: UNK
     Dates: start: 20190125
  3. SODIUM BICARBONATE. [Concomitant]
     Active Substance: SODIUM BICARBONATE
     Dosage: UNK
     Dates: start: 20190124
  4. PREDNISONE. [Suspect]
     Active Substance: PREDNISONE
     Dosage: 60 MILLIGRAM, QD
     Route: 048
  5. BASILIXIMAB [Suspect]
     Active Substance: BASILIXIMAB
     Indication: IMMUNOSUPPRESSION
     Dosage: 20 MILLIGRAM
     Route: 042
     Dates: start: 20190124, end: 20190128
  6. BISACODYL. [Concomitant]
     Active Substance: BISACODYL
  7. TACROLIMUS. [Suspect]
     Active Substance: TACROLIMUS
     Indication: IMMUNOSUPPRESSION
     Dosage: 9 MILLIGRAM, BID
     Route: 048
     Dates: start: 20190125
  8. CALCIUM GLUCONATE. [Concomitant]
     Active Substance: CALCIUM GLUCONATE
  9. ALTEPLASE. [Concomitant]
     Active Substance: ALTEPLASE
  10. LASIX [Concomitant]
     Active Substance: FUROSEMIDE
     Dosage: UNK
     Dates: start: 20190125
  11. PREDNISONE. [Suspect]
     Active Substance: PREDNISONE
     Dosage: 40 MILLIGRAM, QD
     Route: 048
  12. VALGANCICLOVIR. [Concomitant]
     Active Substance: VALGANCICLOVIR
     Dosage: UNK
     Dates: start: 20190125
  13. DOCUSATE SODIUM W/SENNA [Concomitant]
     Active Substance: DOCUSATE SODIUM\SENNA LEAF
     Dosage: UNK
     Dates: start: 20190126
  14. DIAZEPAM. [Concomitant]
     Active Substance: DIAZEPAM
     Dosage: UNK
     Dates: start: 20190124
  15. PREDNISONE. [Suspect]
     Active Substance: PREDNISONE
     Indication: IMMUNOSUPPRESSION
     Dosage: 30 MILLIGRAM, QD
     Route: 048
  16. MYCOPHENOLATE MOFETIL. [Suspect]
     Active Substance: MYCOPHENOLATE MOFETIL
     Dosage: 360 MILLIGRAM, BID
     Route: 048
  17. NYSTATIN. [Concomitant]
     Active Substance: NYSTATIN
     Dosage: UNK
     Dates: start: 20180125
  18. NALOXEGOL [Concomitant]
     Active Substance: NALOXEGOL
     Dosage: UNK
     Dates: start: 20190125
  19. ONDANSETRAN [Concomitant]
     Active Substance: ONDANSETRON HYDROCHLORIDE
  20. MYCOPHENOLATE MOFETIL. [Suspect]
     Active Substance: MYCOPHENOLATE MOFETIL
     Indication: IMMUNOSUPPRESSION
     Dosage: 720 MILLIGRAM, BID
     Route: 048
     Dates: start: 20190130, end: 20190215
  21. HYDROMORPHONE [Concomitant]
     Active Substance: HYDROMORPHONE
  22. BELLADONNA [Concomitant]
     Active Substance: ATROPA BELLADONNA\HOMEOPATHICS
  23. TACROLIMUS. [Suspect]
     Active Substance: TACROLIMUS
     Dosage: 3 MILLIGRAM, BID
     Route: 048
     Dates: start: 20190215
  24. METHYLPREDNISOLONE. [Suspect]
     Active Substance: METHYLPREDNISOLONE
     Indication: IMMUNOSUPPRESSION
     Dosage: 500 MILLIGRAM
     Route: 042
     Dates: start: 20190124
  25. ATORVASTATIN [Concomitant]
     Active Substance: ATORVASTATIN
     Dosage: UNK
     Dates: start: 20190125
  26. FAMOTIDINE. [Concomitant]
     Active Substance: FAMOTIDINE
     Dosage: UNK
     Dates: start: 20190125, end: 20190321
  27. SEPTRA [Concomitant]
     Active Substance: SULFAMETHOXAZOLE\TRIMETHOPRIM
     Dosage: UNK
     Dates: start: 20180125
  28. ACETAMINOPHEN. [Concomitant]
     Active Substance: ACETAMINOPHEN

REACTIONS (4)
  - Diarrhoea [Recovered/Resolved]
  - Focal segmental glomerulosclerosis [Recovered/Resolved]
  - Nausea [Unknown]
  - Dehydration [Recovered/Resolved]
